FAERS Safety Report 4698522-1 (Version None)
Quarter: 2005Q2

REPORT INFORMATION
  Report Type: 
  Country: None (occurrence: None)
  Receive Date: 20050622
  Receipt Date: 20050609
  Transmission Date: 20051028
  Serious: Yes (Other)
  Sender: FDA-Public Use
  Company Number: 2005005838

PATIENT
  Age: 81 Year
  Sex: Female
  Weight: 82.1011 kg

DRUGS (3)
  1. CELEBREX [Suspect]
     Indication: SPINAL COLUMN STENOSIS
     Dosage: 200 MG (200 MG, 2 IN 1 D) ORAL
     Route: 048
     Dates: start: 20030101, end: 20040101
  2. BEXTRA [Suspect]
     Indication: SPINAL COLUMN STENOSIS
     Dosage: 20 MG (10 MG, 2 IN 1 D) ORAL
     Route: 048
     Dates: start: 20040101
  3. ALL OTHER THERAPEUTIC PRODUCTS [Concomitant]

REACTIONS (11)
  - BACK PAIN [None]
  - CARDIAC DISORDER [None]
  - CORONARY ARTERY ATHEROSCLEROSIS [None]
  - DIARRHOEA [None]
  - FEELING ABNORMAL [None]
  - HYPERLIPIDAEMIA [None]
  - INTESTINAL HAEMORRHAGE [None]
  - NAUSEA [None]
  - RENAL CELL CARCINOMA STAGE UNSPECIFIED [None]
  - TREATMENT NONCOMPLIANCE [None]
  - TREMOR [None]
